FAERS Safety Report 9356649 (Version 1)
Quarter: 2013Q2

REPORT INFORMATION
  Report Type: Spontaneous
  Country: ES (occurrence: ES)
  Receive Date: 20130619
  Receipt Date: 20130619
  Transmission Date: 20140414
  Serious: Yes (Life-Threatening)
  Sender: FDA-Public Use
  Company Number: ES-MYLANLABS-2013S1012647

PATIENT
  Age: 71 Year
  Sex: Female

DRUGS (5)
  1. ROCURONIUM BROMIDE [Suspect]
     Indication: GENERAL ANAESTHESIA
     Dosage: 50MG
     Route: 065
  2. AMOXI-CLAVULANICO [Concomitant]
     Route: 065
  3. FENTANYL [Concomitant]
     Dosage: 150MG
     Route: 065
  4. PROPOFOL [Concomitant]
     Dosage: 200MG
     Route: 065
  5. ONDANSETRON [Concomitant]
     Route: 065

REACTIONS (2)
  - Anaphylactic shock [Recovering/Resolving]
  - Cardio-respiratory arrest [Recovered/Resolved]
